FAERS Safety Report 15548939 (Version 1)
Quarter: 2018Q4

REPORT INFORMATION
  Report Type: Spontaneous
  Country: US (occurrence: US)
  Receive Date: 20181025
  Receipt Date: 20181025
  Transmission Date: 20190205
  Serious: No
  Sender: FDA-Public Use
  Company Number: US-APOTEX-2017AP021539

PATIENT
  Sex: Female

DRUGS (1)
  1. RANITIDINE TABLETS USP [Suspect]
     Active Substance: RANITIDINE
     Indication: PRODUCT USED FOR UNKNOWN INDICATION
     Dosage: UNK
     Route: 065

REACTIONS (5)
  - Face injury [Unknown]
  - Syncope [Unknown]
  - Product contamination physical [Unknown]
  - Fall [Unknown]
  - Limb injury [Unknown]
